FAERS Safety Report 7232131-5 (Version None)
Quarter: 2011Q1

REPORT INFORMATION
  Report Type: 
  Country: None (occurrence: None)
  Receive Date: 20110119
  Receipt Date: 20110107
  Transmission Date: 20110831
  Serious: Yes (Hospitalization)
  Sender: FDA-Public Use
  Company Number: US-BIOGENIDEC-2011BI001131

PATIENT
  Age: 48 Year
  Sex: Male

DRUGS (2)
  1. TYSABRI [Suspect]
     Indication: MULTIPLE SCLEROSIS
     Route: 042
     Dates: start: 20070702, end: 20100310
  2. TYSABRI [Suspect]
     Route: 042
     Dates: start: 20101108

REACTIONS (3)
  - STAPHYLOCOCCAL INFECTION [None]
  - SEPSIS [None]
  - MULTIPLE SCLEROSIS [None]
